FAERS Safety Report 4379528-9 (Version None)
Quarter: 2004Q2

REPORT INFORMATION
  Report Type: 
  Country: None (occurrence: None)
  Receive Date: 20040614
  Receipt Date: 20040601
  Transmission Date: 20050107
  Serious: Yes (Hospitalization, Other)
  Sender: FDA-Public Use
  Company Number: 2004037137

PATIENT
  Sex: Female
  Weight: 90.7194 kg

DRUGS (1)
  1. NEURONTIN [Suspect]
     Indication: BIPOLAR DISORDER
     Dosage: ORAL
     Route: 048
     Dates: start: 20010101, end: 20040101

REACTIONS (7)
  - ASTHENIA [None]
  - BRONCHIAL OBSTRUCTION [None]
  - FEELING ABNORMAL [None]
  - LUNG DISORDER [None]
  - NEUROPATHIC PAIN [None]
  - PNEUMONIA [None]
  - PYREXIA [None]
